FAERS Safety Report 24658360 (Version 1)
Quarter: 2024Q4

REPORT INFORMATION
  Report Type: Spontaneous
  Country: CH (occurrence: CH)
  Receive Date: 20241125
  Receipt Date: 20241125
  Transmission Date: 20250115
  Serious: Yes (Hospitalization)
  Sender: CHEPLAPHARM
  Company Number: None

PATIENT
  Age: 62 Year
  Sex: Female

DRUGS (8)
  1. QUETIAPINE [Interacting]
     Active Substance: QUETIAPINE
     Dosage: 60 TABLETS OF QUETIAPINE 25 MG = 1500 MG
     Dates: start: 20240814, end: 20240814
  2. QUETIAPINE [Interacting]
     Active Substance: QUETIAPINE
     Dosage: MORNING NOON AND EVENING?DAILY DOSE: 75 MILLIGRAM
  3. QUETIAPINE [Interacting]
     Active Substance: QUETIAPINE
     Dosage: 3/DAY IN RESERVE IF ANXIETY OR INSOMNIA
  4. CLONAZEPAM [Interacting]
     Active Substance: CLONAZEPAM
     Dates: start: 20240814, end: 20240814
  5. CLONAZEPAM [Interacting]
     Active Substance: CLONAZEPAM
     Dosage: 10 DROPS IN THE EVENING = 1 MG?DAILY DOSE: 1 MILLIGRAM
  6. ESCITALOPRAM [Interacting]
     Active Substance: ESCITALOPRAM OXALATE
     Dosage: 98 TABLETS X 20 MG = 1960 MG
     Dates: start: 20240814, end: 20240814
  7. ESCITALOPRAM [Interacting]
     Active Substance: ESCITALOPRAM OXALATE
     Dosage: IN THE MORNING?DAILY DOSE: 10 MILLIGRAM
  8. CALCIUM PLUS D3 [Concomitant]
     Dosage: 500 MG /800 IU?DAILY DOSE: 1 DOSAGE FORM

REACTIONS (5)
  - Intentional overdose [Recovered/Resolved]
  - Altered state of consciousness [Recovered/Resolved]
  - Hypotension [Recovered/Resolved]
  - Tachycardia [Recovered/Resolved]
  - Drug interaction [Recovered/Resolved]

NARRATIVE: CASE EVENT DATE: 20240814
